FAERS Safety Report 15481989 (Version 1)
Quarter: 2018Q4

REPORT INFORMATION
  Report Type: Spontaneous
  Country: US (occurrence: US)
  Receive Date: 20181003
  Receipt Date: 20181003
  Transmission Date: 20190205
  Serious: Yes (Other)
  Sender: FDA-Public Use
  Company Number: None

PATIENT
  Sex: Male

DRUGS (7)
  1. FLUOXETINE [Concomitant]
     Active Substance: FLUOXETINE HYDROCHLORIDE
  2. TEMOZOLOMIDE. [Suspect]
     Active Substance: TEMOZOLOMIDE
     Indication: NEUROENDOCRINE CARCINOMA METASTATIC
     Dosage: 240 MG 12 HRS DAYS 10-14; ORAL?
     Route: 048
     Dates: start: 20180331
  3. LISINOPRIL. [Concomitant]
     Active Substance: LISINOPRIL
  4. CLARINEX 5MG [Concomitant]
  5. LASIX 20MG [Concomitant]
  6. CAPECITABINE. [Suspect]
     Active Substance: CAPECITABINE
     Indication: NEUROENDOCRINE CARCINOMA METASTATIC
     Dosage: 500 MG 2 @ AM AND 3 @ PM; ORAL?
     Route: 048
     Dates: start: 20180331
  7. MONTELUKAST [Concomitant]
     Active Substance: MONTELUKAST SODIUM

REACTIONS (1)
  - Therapy cessation [None]
